FAERS Safety Report 11419300 (Version 1)
Quarter: 2015Q3

REPORT INFORMATION
  Report Type: Spontaneous
  Country: US (occurrence: None)
  Receive Date: 20150825
  Receipt Date: 20150825
  Transmission Date: 20151125
  Serious: No
  Sender: FDA-Public Use
  Company Number: None

PATIENT
  Age: 47 Year
  Sex: Female
  Weight: 60.33 kg

DRUGS (3)
  1. IMURAN [Concomitant]
     Active Substance: AZATHIOPRINE
  2. ENTYVIO [Suspect]
     Active Substance: VEDOLIZUMAB
  3. MEASLAMINE [Concomitant]

REACTIONS (4)
  - Insomnia [None]
  - Muscle spasms [None]
  - Chills [None]
  - Nausea [None]

NARRATIVE: CASE EVENT DATE: 20150820
